FAERS Safety Report 16003850 (Version 1)
Quarter: 2019Q1

REPORT INFORMATION
  Report Type: Spontaneous
  Country: FR (occurrence: FR)
  Receive Date: 20190226
  Receipt Date: 20190226
  Transmission Date: 20190418
  Serious: Yes (Hospitalization)
  Sender: FDA-Public Use
  Company Number: FR-ORION CORPORATION ORION PHARMA-19_00005628

PATIENT
  Age: 46 Year
  Sex: Female
  Weight: 107 kg

DRUGS (1)
  1. METHOTREXATE (TRADE NAME UNKNOWN) [Suspect]
     Active Substance: METHOTREXATE
     Indication: PSORIATIC ARTHROPATHY
     Route: 048
     Dates: start: 201606, end: 20160901

REACTIONS (3)
  - Asthenia [Unknown]
  - Vertigo [Unknown]
  - Visual impairment [Unknown]

NARRATIVE: CASE EVENT DATE: 20160902
